FAERS Safety Report 5702332-3 (Version None)
Quarter: 2008Q2

REPORT INFORMATION
  Report Type: 
  Country: None (occurrence: None)
  Receive Date: 20080411
  Receipt Date: 20080328
  Transmission Date: 20081010
  Serious: Yes (Life-Threatening, Hospitalization)
  Sender: FDA-Public Use
  Company Number: GB-BAUSCH-2008BL000988

PATIENT
  Age: 72 Year
  Sex: Female
  Weight: 80 kg

DRUGS (11)
  1. PREDNISOLONE [Suspect]
     Indication: DRUG USE FOR UNKNOWN INDICATION
     Dates: start: 20080121
  2. METHOTREXATE [Suspect]
     Indication: DRUG USE FOR UNKNOWN INDICATION
     Dates: start: 20071201
  3. ENBREL [Suspect]
     Indication: DRUG USE FOR UNKNOWN INDICATION
     Dates: start: 20070101
  4. ASPIRIN [Concomitant]
  5. ATENOL [Concomitant]
  6. FUROSEMIDE [Concomitant]
  7. GLICLAZIDE [Concomitant]
  8. MELOXICAM [Concomitant]
  9. OMEPRAZOLE [Concomitant]
  10. ROSIGLITAZONE [Concomitant]
  11. ROSUVASTATIN [Concomitant]

REACTIONS (4)
  - BETA HAEMOLYTIC STREPTOCOCCAL INFECTION [None]
  - CONTINUOUS HAEMODIAFILTRATION [None]
  - MULTI-ORGAN FAILURE [None]
  - SEPSIS [None]
